FAERS Safety Report 9394716 (Version 1)
Quarter: 2013Q3

REPORT INFORMATION
  Report Type: Spontaneous
  Country: US (occurrence: None)
  Receive Date: 20130709
  Receipt Date: 20130709
  Transmission Date: 20140515
  Serious: Yes (Life-Threatening, Hospitalization, Congenital Anomaly, Other)
  Sender: FDA-Public Use
  Company Number: None

PATIENT
  Age: 56 Year
  Sex: Female
  Weight: 68.04 kg

DRUGS (1)
  1. CITALOPRAM [Suspect]
     Indication: DEPRESSION
     Dosage: 1 TABLET
     Route: 048
     Dates: start: 20130128, end: 20130320

REACTIONS (7)
  - Suicidal behaviour [None]
  - Suicide attempt [None]
  - Asphyxia [None]
  - Respiratory arrest [None]
  - Cardiac arrest [None]
  - Vocal cord paralysis [None]
  - Amnesia [None]
